FAERS Safety Report 4400926-9 (Version None)
Quarter: 2004Q3

REPORT INFORMATION
  Report Type: 
  Country: None (occurrence: None)
  Receive Date: 20040907
  Receipt Date: 20030813
  Transmission Date: 20050211
  Serious: No
  Sender: FDA-Public Use
  Company Number: US-BRISTOL-MYERS SQUIBB COMPANY-12354700

PATIENT
  Age: 74 Year
  Sex: Female
  Weight: 101 kg

DRUGS (5)
  1. COUMADIN [Suspect]
     Indication: COAGULOPATHY
     Route: 048
     Dates: start: 19960113
  2. LEVOXYL [Concomitant]
  3. SALICYLATE [Concomitant]
  4. LISINOPRIL [Concomitant]
  5. HYDROCHLOROTHIAZIDE [Concomitant]

REACTIONS (4)
  - ANAL HAEMORRHAGE [None]
  - EPISTAXIS [None]
  - HEADACHE [None]
  - INTERNATIONAL NORMALISED RATIO INCREASED [None]
